FAERS Safety Report 8438126-8 (Version None)
Quarter: 2012Q2

REPORT INFORMATION
  Report Type: 
  Country: None (occurrence: None)
  Receive Date: 20120614
  Receipt Date: 20120601
  Transmission Date: 20120825
  Serious: Yes (Death)
  Sender: FDA-Public Use
  Company Number: AU-MYLANLABS-2012S1011597

PATIENT
  Age: 24 Year
  Sex: Male

DRUGS (3)
  1. DIAZEPAM [Suspect]
     Route: 065
  2. TEMAZEPAM [Suspect]
     Route: 065
  3. OXAZEPAM [Suspect]
     Route: 065

REACTIONS (1)
  - TOXICITY TO VARIOUS AGENTS [None]
